FAERS Safety Report 12886007 (Version 1)
Quarter: 2016Q4

REPORT INFORMATION
  Report Type: Spontaneous
  Country: US (occurrence: US)
  Receive Date: 20161026
  Receipt Date: 20161026
  Transmission Date: 20170207
  Serious: Yes (Hospitalization, Other)
  Sender: FDA-Public Use
  Company Number: US-CELGENEUS-USA-2016104944

PATIENT
  Sex: Female
  Weight: 96.25 kg

DRUGS (3)
  1. REVLIMID [Suspect]
     Active Substance: LENALIDOMIDE
     Route: 048
     Dates: start: 201602
  2. REVLIMID [Suspect]
     Active Substance: LENALIDOMIDE
     Indication: PLASMA CELL MYELOMA
     Route: 048
     Dates: start: 200809, end: 2010
  3. REVLIMID [Suspect]
     Active Substance: LENALIDOMIDE
     Route: 048
     Dates: start: 20150619

REACTIONS (6)
  - Heart rate increased [Unknown]
  - Dyspnoea [Unknown]
  - Weight decreased [Unknown]
  - Venous thrombosis [Unknown]
  - Pulmonary thrombosis [Unknown]
  - Diarrhoea [Unknown]
